FAERS Safety Report 8529312-7 (Version None)
Quarter: 2012Q3

REPORT INFORMATION
  Report Type: 
  Country: None (occurrence: None)
  Receive Date: 20120717
  Receipt Date: 20120717
  Transmission Date: 20120928
  Serious: Yes (Other)
  Sender: FDA-Public Use
  Company Number: None

PATIENT
  Sex: Female

DRUGS (1)
  1. REMBRANDT? 2-HOUR WHITE KIT [Suspect]
     Indication: TOOTH DISCOLOURATION
     Dosage: , , DENTAL

REACTIONS (6)
  - HYPOPHAGIA [None]
  - SENSITIVITY OF TEETH [None]
  - GINGIVAL SWELLING [None]
  - GINGIVAL BLISTER [None]
  - APHASIA [None]
  - GINGIVAL PAIN [None]
